FAERS Safety Report 7584870-4 (Version None)
Quarter: 2011Q2

REPORT INFORMATION
  Report Type: 
  Country: None (occurrence: None)
  Receive Date: 20110630
  Receipt Date: 20110629
  Transmission Date: 20111010
  Serious: Yes (Other)
  Sender: FDA-Public Use
  Company Number: PHHY2010DE52928

PATIENT
  Sex: Female
  Weight: 57 kg

DRUGS (5)
  1. SANDIMMUNE [Suspect]
     Indication: IMMUNOSUPPRESSION
     Dosage: UNK
     Route: 042
     Dates: start: 20100210, end: 20100225
  2. DAPTOMYCIN [Suspect]
     Indication: INFECTION
     Dosage: 5 MG/ KG DAILY
     Route: 042
     Dates: start: 20100213
  3. METHYLPREDNISOLONE [Concomitant]
     Dosage: 64 MG, Q12H
     Route: 042
     Dates: start: 20100224
  4. DAPTOMYCIN [Suspect]
     Dosage: 4 MG/KG DAILY
     Route: 042
     Dates: end: 20100225
  5. PIPERACILLIN [Concomitant]
     Dosage: UNK
     Route: 042
     Dates: start: 20100210, end: 20100225

REACTIONS (2)
  - NEPHROPATHY TOXIC [None]
  - RENAL FAILURE [None]
